FAERS Safety Report 24315123 (Version 1)
Quarter: 2024Q3

REPORT INFORMATION
  Report Type: Other
  Country: CA (occurrence: CA)
  Receive Date: 20240913
  Receipt Date: 20240913
  Transmission Date: 20241016
  Serious: Yes (Death, Hospitalization)
  Sender: TOLMAR
  Company Number: CA-TOLMAR, INC.-24CA051958

PATIENT
  Age: 88 Year
  Sex: Male

DRUGS (3)
  1. ELIGARD [Suspect]
     Active Substance: LEUPROLIDE ACETATE
     Indication: Prostate cancer
     Dosage: 22.5 MILLIGRAM, Q 3 MONTH
     Route: 058
     Dates: start: 20240510
  2. ELIGARD [Suspect]
     Active Substance: LEUPROLIDE ACETATE
     Dosage: 22.5 MILLIGRAM, Q 3 MONTH
     Route: 058
     Dates: start: 20170608
  3. ELIGARD [Suspect]
     Active Substance: LEUPROLIDE ACETATE
     Indication: Prostate cancer
     Dosage: UNK

REACTIONS (5)
  - Death [Fatal]
  - Pulmonary oedema [Unknown]
  - Cardiac procedure complication [Unknown]
  - Haematological infection [Unknown]
  - Iron deficiency [Unknown]

NARRATIVE: CASE EVENT DATE: 20240801
